FAERS Safety Report 8624230-8 (Version None)
Quarter: 2012Q3

REPORT INFORMATION
  Report Type: 
  Country: None (occurrence: None)
  Receive Date: 20120824
  Receipt Date: 20120824
  Transmission Date: 20120928
  Serious: Yes (Life-Threatening)
  Sender: FDA-Public Use
  Company Number: None

PATIENT
  Sex: Female
  Weight: 56.6996 kg

DRUGS (1)
  1. GEMZAR [Suspect]
     Indication: BREAST CANCER METASTATIC
     Dosage: IV WEEKLY
     Route: 042
     Dates: start: 20120206, end: 20120514

REACTIONS (4)
  - ASTHENIA [None]
  - PLEURAL EFFUSION [None]
  - OEDEMA PERIPHERAL [None]
  - BEDRIDDEN [None]
